FAERS Safety Report 8328858 (Version 2)
Quarter: 2015Q1

REPORT INFORMATION
  Report Type: Spontaneous
  Country: FR (occurrence: FR)
  Receive Date: 20120110
  Receipt Date: 20150106
  Transmission Date: 20150721
  Serious: Yes (Hospitalization, Other)
  Sender: FDA-Public Use
  Company Number: FR-PFIZER INC-2011291167

PATIENT
  Age: 88 Year
  Sex: Male

DRUGS (10)
  1. TRIATEC [Suspect]
     Active Substance: RAMIPRIL
     Indication: MYOCARDIAL ISCHAEMIA
     Dosage: 10 MG, DAILY
     Route: 048
     Dates: start: 2005, end: 2011
  2. TRIATEC [Suspect]
     Active Substance: RAMIPRIL
     Dosage: UNK
     Dates: start: 2011
  3. IMOVANE [Suspect]
     Active Substance: ZOPICLONE
     Dosage: 7.5 MG, DAILY
     Route: 048
     Dates: start: 2005
  4. INEXIUM [Suspect]
     Active Substance: ESOMEPRAZOLE
     Dosage: UNK
     Route: 065
     Dates: start: 2011
  5. INEXIUM [Suspect]
     Active Substance: ESOMEPRAZOLE
     Dosage: 40 MG, 2X/DAY
     Route: 048
     Dates: start: 2005, end: 2011
  6. PLAVIX [Concomitant]
     Active Substance: CLOPIDOGREL BISULFATE
     Dosage: UNK
  7. LIPANTHYL [Concomitant]
     Active Substance: FENOFIBRATE
     Dosage: UNK
  8. LEXOMIL [Concomitant]
     Active Substance: BROMAZEPAM
     Dosage: UNK
  9. SECTRAL [Suspect]
     Active Substance: ACEBUTOLOL HYDROCHLORIDE
     Indication: ATRIAL FIBRILLATION
     Dosage: 100 MG, 2X/DAY
     Route: 048
     Dates: start: 2005, end: 201110
  10. AMLOR [Concomitant]
     Active Substance: AMLODIPINE BESYLATE
     Dosage: UNK

REACTIONS (5)
  - Hyperkalaemia [Recovering/Resolving]
  - Malaise [Recovering/Resolving]
  - Bradycardia [Recovering/Resolving]
  - Cognitive disorder [Recovering/Resolving]
  - Hyponatraemia [Recovering/Resolving]

NARRATIVE: CASE EVENT DATE: 20110920
